FAERS Safety Report 5483797-1 (Version None)
Quarter: 2007Q4

REPORT INFORMATION
  Report Type: 
  Country: None (occurrence: None)
  Receive Date: 20071010
  Receipt Date: 20070925
  Transmission Date: 20080405
  Serious: Yes (Hospitalization)
  Sender: FDA-Public Use
  Company Number: 238205K07USA

PATIENT
  Age: 58 Year
  Sex: Female

DRUGS (9)
  1. REBIF [Suspect]
     Indication: MULTIPLE SCLEROSIS
     Dosage: 44 MCG, 3 IN 1 WEEKS, SUBCUTANEOUS
     Route: 058
     Dates: start: 20070411
  2. BACLOFEN [Concomitant]
  3. METOCLOPRAMIDE (METOCLOPRAMIDE /00041901/) [Concomitant]
  4. NEXIUM [Concomitant]
  5. LAMICTAL [Concomitant]
  6. SINGULAIR (MONTELUKAST /01362601/) [Concomitant]
  7. LEXAPRO [Concomitant]
  8. KLONOPIN [Concomitant]
  9. FOSAMAX [Concomitant]

REACTIONS (4)
  - ABDOMINAL PAIN UPPER [None]
  - COLLAPSE OF LUNG [None]
  - COLONIC POLYP [None]
  - LUNG INFECTION [None]
